FAERS Safety Report 5771844-9 (Version None)
Quarter: 2008Q2

REPORT INFORMATION
  Report Type: 
  Country: None (occurrence: None)
  Receive Date: 20080613
  Receipt Date: 20080604
  Transmission Date: 20081010
  Serious: Yes (Hospitalization)
  Sender: FDA-Public Use
  Company Number: B0308369A

PATIENT
  Age: 51 Year
  Sex: Female

DRUGS (10)
  1. SEROXAT [Suspect]
     Indication: DEPRESSION
     Route: 065
     Dates: start: 19980728, end: 20030101
  2. TRAZODONE HCL [Concomitant]
     Dosage: 300MG PER DAY
     Route: 065
  3. MIRTAZAPINE [Concomitant]
     Route: 065
  4. RISPERIDONE [Concomitant]
     Dosage: 1MG PER DAY
     Route: 065
  5. CITALOPRAM HYDROBROMIDE [Concomitant]
     Route: 065
  6. TRAZODONE HCL [Concomitant]
     Dates: start: 20030723
  7. LUSTRAL [Concomitant]
     Dates: start: 19731113
  8. CLOMIPRAMINE HCL [Concomitant]
     Dates: start: 19761129
  9. ZISPIN [Concomitant]
     Dates: start: 20021231
  10. DIAZEPAM [Concomitant]
     Dates: start: 19770903

REACTIONS (18)
  - AGITATION [None]
  - ANOREXIA [None]
  - ANXIETY [None]
  - DEPRESSED MOOD [None]
  - DEPRESSION [None]
  - DRUG DEPENDENCE [None]
  - INSOMNIA [None]
  - INTENTIONAL OVERDOSE [None]
  - MENTAL DISORDER [None]
  - NAUSEA [None]
  - NIGHTMARE [None]
  - OBSESSIVE THOUGHTS [None]
  - RESTLESSNESS [None]
  - SUICIDAL IDEATION [None]
  - TEARFULNESS [None]
  - VOMITING [None]
  - WEIGHT DECREASED [None]
  - WITHDRAWAL SYNDROME [None]
